FAERS Safety Report 12949127 (Version 2)
Quarter: 2017Q1

REPORT INFORMATION
  Report Type: Spontaneous
  Country: US (occurrence: US)
  Receive Date: 20161117
  Receipt Date: 20170328
  Transmission Date: 20170428
  Serious: Yes (Other)
  Sender: FDA-Public Use
  Company Number: US-PFIZER INC-2016530588

PATIENT
  Age: 37 Year
  Sex: Female

DRUGS (1)
  1. IBRANCE [Suspect]
     Active Substance: PALBOCICLIB
     Indication: BREAST CANCER METASTATIC
     Dosage: 125 MG, UNK
     Dates: start: 20150710

REACTIONS (8)
  - Alopecia [Unknown]
  - Fatigue [Unknown]
  - Feeling abnormal [Unknown]
  - Libido decreased [Unknown]
  - Rib fracture [Unknown]
  - Memory impairment [Unknown]
  - White blood cell count decreased [Unknown]
  - Neutropenia [Unknown]
